FAERS Safety Report 23966107 (Version 1)
Quarter: 2024Q2

REPORT INFORMATION
  Report Type: Spontaneous
  Country: FR (occurrence: FR)
  Receive Date: 20240612
  Receipt Date: 20240612
  Transmission Date: 20240715
  Serious: Yes (Hospitalization)
  Sender: FDA-Public Use
  Company Number: FR-ROCHE-3280678

PATIENT
  Age: 63 Year
  Sex: Female
  Weight: 51 kg

DRUGS (13)
  1. PEMETREXED [Suspect]
     Active Substance: PEMETREXED
     Indication: Non-small cell lung cancer metastatic
     Dosage: 750 MG, EVERY 3 WEEKS
     Route: 042
     Dates: start: 20230130
  2. CARBOPLATIN [Suspect]
     Active Substance: CARBOPLATIN
     Indication: Non-small cell lung cancer metastatic
     Dosage: 650 MG, EVERY 3 WEEKS
     Route: 042
     Dates: start: 20230130
  3. INNOHEP [Concomitant]
     Active Substance: TINZAPARIN SODIUM
     Indication: Venous thrombosis
     Dates: start: 20230118
  4. INNOHEP [Concomitant]
     Active Substance: TINZAPARIN SODIUM
     Indication: Pulmonary embolism
  5. XANAX [Concomitant]
     Active Substance: ALPRAZOLAM
     Indication: Anxiety
     Dates: start: 20230109
  6. ACETAMINOPHEN [Concomitant]
     Active Substance: ACETAMINOPHEN
     Indication: Cancer pain
     Dosage: FREQ:.33 D;
     Dates: start: 20221109
  7. FOLIC ACID [Concomitant]
     Active Substance: FOLIC ACID
     Dosage: 0.4MG, 1X/DAY
     Dates: start: 20221216
  8. ATEZOLIZUMAB [Concomitant]
     Active Substance: ATEZOLIZUMAB
     Indication: Non-small cell lung cancer metastatic
     Dosage: UNK
  9. ATEZOLIZUMAB [Concomitant]
     Active Substance: ATEZOLIZUMAB
     Dosage: 200 ML, EVERY 3 WEEKS
     Dates: start: 20230130
  10. TIRAGOLUMAB [Concomitant]
     Active Substance: TIRAGOLUMAB
     Indication: Non-small cell lung cancer metastatic
     Dosage: 600 MG, EVERY 3 WEEKS
     Dates: start: 20230130
  11. TIRAGOLUMAB [Concomitant]
     Active Substance: TIRAGOLUMAB
     Dosage: UNK
  12. B12 VITAMIN ANKERMANN [Concomitant]
     Dosage: 1000UG
     Dates: start: 20221216
  13. TRAMADOL HYDROCHLORIDE [Concomitant]
     Active Substance: TRAMADOL HYDROCHLORIDE
     Indication: Cancer pain
     Dosage: FREQ:.5 D;
     Dates: start: 20221202

REACTIONS (2)
  - Bronchitis [Recovered/Resolved]
  - Off label use [Unknown]

NARRATIVE: CASE EVENT DATE: 20230130
